FAERS Safety Report 25735858 (Version 1)
Quarter: 2025Q3

REPORT INFORMATION
  Report Type: Spontaneous
  Country: US (occurrence: US)
  Receive Date: 20250828
  Receipt Date: 20250828
  Transmission Date: 20251021
  Serious: Yes (Other)
  Sender: CARNEGIE PHARMACEUTICALS LLC
  Company Number: US-CARNEGIE-000074

PATIENT
  Age: 18 Year
  Sex: Female

DRUGS (4)
  1. NAPROXEN [Concomitant]
     Active Substance: NAPROXEN
     Indication: External ear cellulitis
     Route: 065
  2. DICLOXACILLIN [Concomitant]
     Active Substance: DICLOXACILLIN
     Indication: External ear cellulitis
     Route: 065
  3. CLINDAMYCIN PHOSPHATE [Suspect]
     Active Substance: CLINDAMYCIN PHOSPHATE
     Indication: External ear cellulitis
     Route: 048
  4. CLINDAMYCIN PHOSPHATE [Suspect]
     Active Substance: CLINDAMYCIN PHOSPHATE
     Indication: External ear cellulitis
     Route: 061

REACTIONS (1)
  - Acute generalised exanthematous pustulosis [Recovered/Resolved]
